FAERS Safety Report 20987318 (Version 5)
Quarter: 2022Q3

REPORT INFORMATION
  Report Type: Report from Study
  Country: DE (occurrence: DE)
  Receive Date: 20220621
  Receipt Date: 20220921
  Transmission Date: 20221027
  Serious: Yes (Other)
  Sender: FDA-Public Use
  Company Number: DE-TAKEDA-2022TUS041299

PATIENT
  Age: 38 Year
  Sex: Male

DRUGS (27)
  1. TEDUGLUTIDE [Suspect]
     Active Substance: TEDUGLUTIDE
     Indication: Short-bowel syndrome
     Dosage: 4 MILLIGRAM, QD
     Route: 042
     Dates: start: 20150719, end: 20200909
  2. TEDUGLUTIDE [Suspect]
     Active Substance: TEDUGLUTIDE
     Indication: Short-bowel syndrome
     Dosage: 4 MILLIGRAM, QD
     Route: 042
     Dates: start: 20150719, end: 20200909
  3. TEDUGLUTIDE [Suspect]
     Active Substance: TEDUGLUTIDE
     Indication: Short-bowel syndrome
     Dosage: 4 MILLIGRAM, QD
     Route: 042
     Dates: start: 20150719, end: 20200909
  4. TEDUGLUTIDE [Suspect]
     Active Substance: TEDUGLUTIDE
     Indication: Short-bowel syndrome
     Dosage: 4 MILLIGRAM, QD
     Route: 042
     Dates: start: 20150719, end: 20200909
  5. TEDUGLUTIDE [Suspect]
     Active Substance: TEDUGLUTIDE
     Dosage: 3.2 MILLIGRAM, QD
     Route: 042
     Dates: start: 20200909
  6. TEDUGLUTIDE [Suspect]
     Active Substance: TEDUGLUTIDE
     Dosage: 3.2 MILLIGRAM, QD
     Route: 042
     Dates: start: 20200909
  7. TEDUGLUTIDE [Suspect]
     Active Substance: TEDUGLUTIDE
     Dosage: 3.2 MILLIGRAM, QD
     Route: 042
     Dates: start: 20200909
  8. TEDUGLUTIDE [Suspect]
     Active Substance: TEDUGLUTIDE
     Dosage: 3.2 MILLIGRAM, QD
     Route: 042
     Dates: start: 20200909
  9. PSYLLIUM [Concomitant]
     Active Substance: PLANTAGO SEED
     Indication: Diarrhoea
     Dosage: UNK UNK, BID
     Route: 048
     Dates: start: 202109
  10. FOLIC ACID [Concomitant]
     Active Substance: FOLIC ACID
     Indication: Supplementation therapy
     Dosage: 5 MILLIGRAM, QOD
     Route: 048
     Dates: start: 201707
  11. MAGNESIUM [Concomitant]
     Active Substance: MAGNESIUM
     Indication: Supplementation therapy
     Dosage: UNK, QD
     Route: 048
     Dates: start: 2016
  12. SODIUM BICARBONATE [Concomitant]
     Active Substance: SODIUM BICARBONATE
     Indication: Metabolic acidosis
     Dosage: 840 MILLIGRAM, Q3HR
     Route: 048
     Dates: start: 202108
  13. MIRTAZAPINE [Concomitant]
     Active Substance: MIRTAZAPINE
     Indication: Mechanical ileus
     Dosage: 15 MILLIGRAM, QD
     Route: 048
     Dates: start: 202206
  14. LOPERAMIDE [Concomitant]
     Active Substance: LOPERAMIDE
     Indication: Diarrhoea
     Dosage: UNK UNK, TID
     Route: 048
     Dates: start: 202206
  15. GASTROGRAFIN [Concomitant]
     Active Substance: DIATRIZOATE MEGLUMINE\DIATRIZOATE SODIUM
     Indication: Faecaloma
     Dosage: 20 MILLILITER, QID
     Route: 048
     Dates: start: 202206
  16. ENOXAPARIN SODIUM [Concomitant]
     Active Substance: ENOXAPARIN SODIUM
     Indication: Thrombosis prophylaxis
     Dosage: 20 MILLIGRAM, QD
     Route: 065
  17. ENOXAPARIN SODIUM [Concomitant]
     Active Substance: ENOXAPARIN SODIUM
     Dosage: 20 MILLIGRAM, QD
     Route: 065
     Dates: start: 202206
  18. PANTOPRAZOLE SODIUM [Concomitant]
     Active Substance: PANTOPRAZOLE SODIUM
     Indication: Gastrooesophageal reflux disease
     Dosage: 40 MILLIGRAM, QD
     Route: 048
     Dates: start: 2016, end: 202206
  19. APLONA [Concomitant]
     Indication: Diarrhoea
     Dosage: UNK
     Route: 048
     Dates: start: 202002
  20. ZINC [Concomitant]
     Active Substance: ZINC
     Indication: Supplementation therapy
     Dosage: 25 MILLIGRAM, QD
     Route: 048
     Dates: start: 201610
  21. SELENIUM [Concomitant]
     Active Substance: SELENIUM
     Indication: Supplementation therapy
     Dosage: 100 MICROGRAM, QD
     Route: 048
     Dates: start: 201610
  22. SODIUM BICARBONATE [Concomitant]
     Active Substance: SODIUM BICARBONATE
     Indication: Metabolic acidosis
     Dosage: UNK
     Route: 048
     Dates: start: 202108
  23. ETOCOXIB [Concomitant]
     Indication: Serositis
     Dosage: 90 MILLIGRAM, QD
     Route: 048
     Dates: start: 201107
  24. ETOCOXIB [Concomitant]
     Indication: Rheumatoid arthritis
  25. FERRIC MALTOL [Concomitant]
     Active Substance: FERRIC MALTOL
     Indication: Anaemia
     Dosage: 30 MILLIGRAM, BID
     Route: 048
     Dates: start: 202003
  26. LACTULOSE [Concomitant]
     Active Substance: LACTULOSE
     Indication: Faecaloma
     Dosage: 66.7 GRAM
     Route: 048
     Dates: start: 202206
  27. MELATONIN [Concomitant]
     Active Substance: MELATONIN
     Indication: Product used for unknown indication
     Dosage: 4 MILLIGRAM, QD
     Route: 048
     Dates: start: 202206

REACTIONS (1)
  - Pneumonia [Recovered/Resolved]

NARRATIVE: CASE EVENT DATE: 20220221
